FAERS Safety Report 21207323 (Version 1)
Quarter: 2022Q3

REPORT INFORMATION
  Report Type: Spontaneous
  Country: FR (occurrence: FR)
  Receive Date: 20220812
  Receipt Date: 20220812
  Transmission Date: 20221026
  Serious: Yes (Other)
  Sender: FDA-Public Use
  Company Number: FR-ADVANZ PHARMA-202207004170

PATIENT
  Age: 72 Year
  Sex: Male

DRUGS (2)
  1. ALPROSTADIL [Suspect]
     Active Substance: ALPROSTADIL
     Dosage: UNK
  2. EDEX [Suspect]
     Active Substance: ALPROSTADIL
     Dosage: UNK, EASYPEN
     Dates: start: 2021

REACTIONS (6)
  - Incorrect dose administered by device [Unknown]
  - Injection site haematoma [Unknown]
  - Injection site pain [Unknown]
  - Product dose omission issue [Unknown]
  - Device issue [Unknown]
  - Injury associated with device [Unknown]
